FAERS Safety Report 20182451 (Version 1)
Quarter: 2021Q4

REPORT INFORMATION
  Report Type: Spontaneous
  Country: CN (occurrence: CN)
  Receive Date: 20211214
  Receipt Date: 20211214
  Transmission Date: 20220303
  Serious: Yes (Other)
  Sender: FDA-Public Use
  Company Number: CN-PFIZER INC-202101706689

PATIENT
  Age: 47 Year
  Sex: Male
  Weight: 72 kg

DRUGS (1)
  1. METHYLPREDNISOLONE SODIUM SUCCINATE [Suspect]
     Active Substance: METHYLPREDNISOLONE SODIUM SUCCINATE
     Indication: Thyroiditis subacute
     Dosage: 40 MG, 1X/DAY
     Route: 041
     Dates: start: 20211122, end: 20211126

REACTIONS (3)
  - Atrial fibrillation [Recovered/Resolved]
  - Agitation [Recovered/Resolved]
  - Heart rate irregular [Recovered/Resolved]

NARRATIVE: CASE EVENT DATE: 20211126
